FAERS Safety Report 15869295 (Version 1)
Quarter: 2019Q1

REPORT INFORMATION
  Report Type: Report from Study
  Country: US (occurrence: US)
  Receive Date: 20190125
  Receipt Date: 20190125
  Transmission Date: 20190417
  Serious: Yes (Death, Other)
  Sender: FDA-Public Use
  Company Number: US-TESAROUBC-US-2018TSO04295

PATIENT
  Age: 71 Year
  Sex: Female
  Weight: 58 kg

DRUGS (23)
  1. KEYTRUDA [Concomitant]
     Active Substance: PEMBROLIZUMAB
     Indication: PRODUCT USED FOR UNKNOWN INDICATION
     Dosage: 200 MG, UNK EVERY 21 DAYS, FOR 1ST CYCLE
     Route: 042
     Dates: start: 20180815
  2. KEYTRUDA [Concomitant]
     Active Substance: PEMBROLIZUMAB
     Dosage: 200 MG, UNK EVERY 21 DAYS, CYCLE 3
     Route: 042
     Dates: start: 20180926
  3. GABAPENTIN. [Concomitant]
     Active Substance: GABAPENTIN
     Indication: HERPES ZOSTER
     Dosage: UNK MG, UNK (100 MG IN AM AND 600MG PM)
     Dates: start: 20180810, end: 20181030
  4. DEXMETHYLPHENIDATE HYDROCHLORIDE. [Concomitant]
     Active Substance: DEXMETHYLPHENIDATE HYDROCHLORIDE
     Indication: PRODUCT USED FOR UNKNOWN INDICATION
     Dosage: 5 MG, QD EVERY MORNING
     Route: 048
  5. LORAZEPAM. [Concomitant]
     Active Substance: LORAZEPAM
     Indication: PRODUCT USED FOR UNKNOWN INDICATION
     Dosage: 0.5 MG, UNK
     Route: 048
  6. MAGNESIUM CITRATE. [Concomitant]
     Active Substance: MAGNESIUM CITRATE
     Indication: PRODUCT USED FOR UNKNOWN INDICATION
     Dosage: UNK (1.745 GM/ 30ML) ORAL SOLUTION
     Route: 048
  7. DOCUSATE SODIUM + SENNA [Concomitant]
     Active Substance: DOCUSATE SODIUM\SENNOSIDE A\SENNOSIDE B
     Indication: PRODUCT USED FOR UNKNOWN INDICATION
     Dosage: 1 DF, UNK (8.6-50 MG)
     Route: 048
  8. ACETYLSALICYLIC ACID W/CAFFEINE CITRATE/PARACETAMOL [Concomitant]
     Indication: PAIN
     Dosage: UNK (1-2 TABS BY MOUTH EVERY 4 TO 6 HOURS AS NEEDED)
     Route: 048
  9. ELIQUIS [Concomitant]
     Active Substance: APIXABAN
     Indication: DEEP VEIN THROMBOSIS
     Dosage: 5 MG, BID
     Route: 048
     Dates: start: 20181010, end: 20181030
  10. OMEPRAZOLE. [Concomitant]
     Active Substance: OMEPRAZOLE
     Indication: PRODUCT USED FOR UNKNOWN INDICATION
     Dosage: 20 MG, QD ON AN EMPTY STOMACH
     Route: 048
     Dates: start: 20180425, end: 20181030
  11. PROPANOLOL HYDROCHLORIDE [Concomitant]
     Active Substance: PROPRANOLOL HYDROCHLORIDE
     Indication: ATAXIA
  12. MULTIPLE VITAMINS [Concomitant]
     Active Substance: VITAMINS
     Indication: PRODUCT USED FOR UNKNOWN INDICATION
     Dosage: 1 DF, QD
     Route: 048
  13. KEYTRUDA [Concomitant]
     Active Substance: PEMBROLIZUMAB
     Dosage: 200 MG, UNK EVERY 21 DAYS, CYCLE 4
     Route: 042
     Dates: start: 20181017
  14. CALCIUM CARBONATE. [Concomitant]
     Active Substance: CALCIUM CARBONATE
     Indication: PRODUCT USED FOR UNKNOWN INDICATION
     Dosage: 1250 MG, BID
     Route: 048
     Dates: start: 2016, end: 20181030
  15. ZEJULA [Suspect]
     Active Substance: NIRAPARIB
     Dosage: 100 MG QD
     Route: 048
     Dates: start: 20181018, end: 20181024
  16. FENTANYL TRANSDERMAL SYSTEM [Concomitant]
     Active Substance: FENTANYL
     Indication: HERPES ZOSTER
     Dosage: 25 ?G, UNK EVERY 12 HOURS
     Dates: start: 20181017, end: 20181030
  17. LEVOTHYROXINE. [Concomitant]
     Active Substance: LEVOTHYROXINE
     Indication: PRODUCT USED FOR UNKNOWN INDICATION
     Dosage: 75 ?G, QD (1 TAB 6 DAYS IN A WEEK AND 2 TABS ONE DAY /WEEK)
     Route: 048
     Dates: start: 20180425, end: 20181030
  18. ZEJULA [Suspect]
     Active Substance: NIRAPARIB
     Indication: OVARIAN CANCER
     Dosage: 200 MG, QD
     Route: 048
     Dates: start: 20180815, end: 20180926
  19. PROPANOLOL HYDROCHLORIDE [Concomitant]
     Active Substance: PROPRANOLOL HYDROCHLORIDE
     Indication: TREMOR
     Dosage: 60 MG, QD
     Route: 048
     Dates: start: 20180425, end: 20181030
  20. DEXAMETHASONE. [Concomitant]
     Active Substance: DEXAMETHASONE
     Indication: PRODUCT USED FOR UNKNOWN INDICATION
     Dosage: 4 MG, QD
     Route: 048
  21. ZEJULA [Suspect]
     Active Substance: NIRAPARIB
     Dosage: 100 MG QD
     Route: 048
     Dates: start: 20181010, end: 20181017
  22. KEYTRUDA [Concomitant]
     Active Substance: PEMBROLIZUMAB
     Dosage: 200 MG, UNK EVERY 21 DAYS, CYCLE 2
     Route: 042
     Dates: start: 20180905
  23. GABAPENTIN. [Concomitant]
     Active Substance: GABAPENTIN
     Indication: PAIN

REACTIONS (27)
  - Disease progression [Fatal]
  - Thrombocytopenia [Recovered/Resolved]
  - Oral pain [Not Recovered/Not Resolved]
  - Gait inability [Unknown]
  - Fall [Unknown]
  - Vomiting [Recovered/Resolved]
  - Haemoglobin decreased [Not Recovered/Not Resolved]
  - Petechiae [Not Recovered/Not Resolved]
  - Haematocrit decreased [Recovered/Resolved]
  - Pulse abnormal [Not Recovered/Not Resolved]
  - Hypotension [Unknown]
  - Platelet count decreased [Recovered/Resolved]
  - Peripheral swelling [Not Recovered/Not Resolved]
  - Skin ulcer [Unknown]
  - Contusion [Recovered/Resolved]
  - Nausea [Recovering/Resolving]
  - Dizziness [Not Recovered/Not Resolved]
  - Anaemia [Recovered/Resolved]
  - Urinary incontinence [Unknown]
  - Weight decreased [Not Recovered/Not Resolved]
  - Asthenia [Not Recovered/Not Resolved]
  - Dehydration [Recovered/Resolved]
  - Diarrhoea [Recovered/Resolved]
  - Fatigue [Not Recovered/Not Resolved]
  - Constipation [Recovered/Resolved]
  - Decreased appetite [Not Recovered/Not Resolved]
  - Red blood cell count decreased [Not Recovered/Not Resolved]

NARRATIVE: CASE EVENT DATE: 20180824
